FAERS Safety Report 19194882 (Version 3)
Quarter: 2021Q2

REPORT INFORMATION
  Report Type: Report from Study
  Country: BR (occurrence: BR)
  Receive Date: 20210429
  Receipt Date: 20210628
  Transmission Date: 20210717
  Serious: Yes (Other)
  Sender: FDA-Public Use
  Company Number: NVSC2021BR009676

PATIENT
  Age: 81 Year
  Sex: Female

DRUGS (7)
  1. LETROZOLE. [Suspect]
     Active Substance: LETROZOLE
     Indication: BREAST CANCER STAGE IV
     Dosage: 2.5 MG, QD
     Route: 065
     Dates: start: 202010
  2. KISQALI [Suspect]
     Active Substance: RIBOCICLIB
     Indication: HORMONE RECEPTOR POSITIVE BREAST CANCER
  3. LETROZOLE. [Suspect]
     Active Substance: LETROZOLE
     Indication: HORMONE RECEPTOR POSITIVE BREAST CANCER
  4. KISQALI [Suspect]
     Active Substance: RIBOCICLIB
     Indication: BREAST CANCER FEMALE
     Dosage: 600 DF, QD (FOR 21 DAYS EVERY 28 DAYS), 3 TABLETS PER DAY
     Route: 065
     Dates: start: 20201007, end: 20210114
  5. KISQALI [Suspect]
     Active Substance: RIBOCICLIB
     Indication: BREAST CANCER STAGE IV
     Dosage: 400 MG, QD (FOR 21 DAYS EVERY 28 DAYS), 2 TABLETS PER DAY
     Route: 065
     Dates: start: 20210115
  6. CALCIUM [Concomitant]
     Active Substance: CALCIUM
     Indication: PRODUCT USED FOR UNKNOWN INDICATION
     Route: 065
  7. VITAMIN D [Concomitant]
     Active Substance: VITAMIN D NOS
     Indication: PRODUCT USED FOR UNKNOWN INDICATION
     Route: 065

REACTIONS (36)
  - Pleural effusion [Unknown]
  - Osteosclerosis [Unknown]
  - Bone metabolism disorder [Recovered/Resolved]
  - White blood cell count decreased [Unknown]
  - Multiple sclerosis [Unknown]
  - Immunosuppression [Unknown]
  - Breast cancer [Unknown]
  - Haematotoxicity [Unknown]
  - White matter lesion [Unknown]
  - Bone lesion [Recovered/Resolved]
  - Decreased appetite [Not Recovered/Not Resolved]
  - Spinal pain [Not Recovered/Not Resolved]
  - Tongue disorder [Unknown]
  - Lymphadenopathy [Recovered/Resolved]
  - Gastritis [Unknown]
  - Cardiac disorder [Unknown]
  - Intervertebral disc disorder [Unknown]
  - Bone lesion [Unknown]
  - Metabolic disorder [Recovered/Resolved]
  - Metabolic disorder [Recovering/Resolving]
  - Pain of skin [Unknown]
  - Pleural disorder [Unknown]
  - Rheumatic disorder [Not Recovered/Not Resolved]
  - Back pain [Unknown]
  - Arthralgia [Unknown]
  - Acquired diaphragmatic eventration [Unknown]
  - Atelectasis [Unknown]
  - Bone metabolism disorder [Recovering/Resolving]
  - Pain [Not Recovered/Not Resolved]
  - Dysgeusia [Unknown]
  - Arteriosclerosis [Unknown]
  - Pulmonary mass [Unknown]
  - Bone disorder [Recovering/Resolving]
  - Pain [Unknown]
  - Mediastinal disorder [Unknown]
  - Headache [Not Recovered/Not Resolved]

NARRATIVE: CASE EVENT DATE: 202012
